FAERS Safety Report 13857338 (Version 2)
Quarter: 2017Q4

REPORT INFORMATION
  Report Type: Report from Study
  Country: US (occurrence: US)
  Receive Date: 20170810
  Receipt Date: 20171027
  Transmission Date: 20180320
  Serious: Yes (Death, Hospitalization)
  Sender: FDA-Public Use
  Company Number: US-VIFOR (INTERNATIONAL) INC.-VIT-2017-08438

PATIENT
  Age: 84 Year
  Sex: Male

DRUGS (31)
  1. PROPRANOLOL [Concomitant]
     Active Substance: PROPRANOLOL HYDROCHLORIDE
     Dates: start: 20170801
  2. MIDODRINE [Concomitant]
     Active Substance: MIDODRINE
  3. B6 FOLIC ACID [Concomitant]
  4. ATORVASTATIN [Concomitant]
     Active Substance: ATORVASTATIN
     Dates: start: 20170606
  5. PYRIDOXINE [Concomitant]
     Active Substance: PYRIDOXINE
     Dates: start: 20170721
  6. ISONIAZID. [Concomitant]
     Active Substance: ISONIAZID
     Dates: start: 20170721
  7. DOXEPIN HYDROCHLORIDE. [Concomitant]
     Active Substance: DOXEPIN HYDROCHLORIDE
     Dates: start: 20170602
  8. QUETIAPINE. [Concomitant]
     Active Substance: QUETIAPINE
     Dates: start: 20161114
  9. CETIRIZINE HYDROCHLORIDE. [Concomitant]
     Active Substance: CETIRIZINE HYDROCHLORIDE
     Dates: start: 20170711
  10. PROPRANOLOL [Concomitant]
     Active Substance: PROPRANOLOL HYDROCHLORIDE
     Dates: start: 20170502
  11. QUETIAPINE. [Concomitant]
     Active Substance: QUETIAPINE
     Dates: start: 20170502
  12. FLUTICASONE. [Concomitant]
     Active Substance: FLUTICASONE
     Dates: start: 20170304
  13. FUROSEMIDE. [Concomitant]
     Active Substance: FUROSEMIDE
     Dates: start: 20170613
  14. ISONIAZID. [Concomitant]
     Active Substance: ISONIAZID
  15. GABAPENTIN. [Concomitant]
     Active Substance: GABAPENTIN
     Dates: start: 20160906
  16. DOXEPIN HYDROCHLORIDE. [Concomitant]
     Active Substance: DOXEPIN HYDROCHLORIDE
     Dates: start: 20170806
  17. LIOTHYRONINE [Concomitant]
     Active Substance: LIOTHYRONINE
     Dates: start: 20170806
  18. LIOTHYRONINE [Concomitant]
     Active Substance: LIOTHYRONINE
     Dates: start: 20170707
  19. FLUDROCORTISONE [Concomitant]
     Active Substance: FLUDROCORTISONE
     Dates: start: 20170628
  20. TRAMADOL HYDROCHLORIDE. [Concomitant]
     Active Substance: TRAMADOL HYDROCHLORIDE
     Dates: start: 20170721
  21. NEXIUM [Concomitant]
     Active Substance: ESOMEPRAZOLE MAGNESIUM
     Dates: start: 20170224
  22. DULOXETINE. [Concomitant]
     Active Substance: DULOXETINE
     Dates: start: 20170124
  23. ATORVASTATIN [Concomitant]
     Active Substance: ATORVASTATIN
     Dates: start: 20170306
  24. ATORVASTATIN [Concomitant]
     Active Substance: ATORVASTATIN
     Dates: start: 20170304
  25. ESOMEPRAZOLE MAGNESIUM. [Concomitant]
     Active Substance: ESOMEPRAZOLE MAGNESIUM
     Dates: start: 20170226
  26. MORPHINE [Concomitant]
     Active Substance: MORPHINE
  27. VELTASSA [Suspect]
     Active Substance: PATIROMER
     Indication: HYPERKALAEMIA
     Route: 048
     Dates: start: 20170214
  28. MORPHINE SULFATE. [Concomitant]
     Active Substance: MORPHINE SULFATE
     Dates: start: 20170630
  29. NYSTATIN. [Concomitant]
     Active Substance: NYSTATIN
  30. MACROGOL [Concomitant]
     Active Substance: POLYETHYLENE GLYCOLS
  31. MEGESTROL [Concomitant]
     Active Substance: MEGESTROL

REACTIONS (2)
  - Hospitalisation [Not Recovered/Not Resolved]
  - Death [Fatal]

NARRATIVE: CASE EVENT DATE: 201708
